FAERS Safety Report 14246209 (Version 1)
Quarter: 2017Q4

REPORT INFORMATION
  Report Type: Spontaneous
  Country: US (occurrence: None)
  Receive Date: 20171201
  Receipt Date: 20171201
  Transmission Date: 20180321
  Serious: No
  Sender: FDA-Public Use
  Company Number: None

PATIENT
  Age: 58 Year
  Sex: Female

DRUGS (1)
  1. MYCOPHENOLIC TAB 360MG DR [Suspect]
     Active Substance: MYCOPHENOLIC ACID

REACTIONS (4)
  - Nervous system disorder [None]
  - Infection [None]
  - Hypoaesthesia [None]
  - Ill-defined disorder [None]

NARRATIVE: CASE EVENT DATE: 20171001
